FAERS Safety Report 23458193 (Version 1)
Quarter: 2024Q1

REPORT INFORMATION
  Report Type: Spontaneous
  Country: FR (occurrence: FR)
  Receive Date: 20240130
  Receipt Date: 20240130
  Transmission Date: 20240409
  Serious: Yes (Other)
  Sender: FDA-Public Use
  Company Number: None

PATIENT
  Age: 69 Year
  Sex: Male
  Weight: 91 kg

DRUGS (2)
  1. ETOPOSIDE [Suspect]
     Active Substance: ETOPOSIDE
     Indication: Small cell lung cancer
     Dosage: TIME INTERVAL: 1 TOTAL: 5 CURES
     Route: 042
     Dates: start: 20230515, end: 20230829
  2. CARBOPLATIN [Suspect]
     Active Substance: CARBOPLATIN
     Indication: Small cell lung cancer
     Dosage: TIME INTERVAL: 1 CYCLICAL: 5 CURES
     Route: 042
     Dates: start: 20230515, end: 20230828

REACTIONS (4)
  - General physical health deterioration [Unknown]
  - Balance disorder [Unknown]
  - Decreased appetite [Unknown]
  - Asthenia [Unknown]

NARRATIVE: CASE EVENT DATE: 20230916
